FAERS Safety Report 9198911 (Version 3)
Quarter: 2013Q2

REPORT INFORMATION
  Report Type: Spontaneous
  Country: IT (occurrence: IT)
  Receive Date: 20130329
  Receipt Date: 20130502
  Transmission Date: 20140414
  Serious: Yes (Hospitalization)
  Sender: FDA-Public Use
  Company Number: IT-009507513-1303ITA013564

PATIENT
  Age: 61 Year
  Sex: Male
  Weight: 80 kg

DRUGS (2)
  1. ONCOTICE [Suspect]
     Indication: BLADDER CANCER
     Dosage: 1 DF, QW
     Route: 043
     Dates: start: 20130123, end: 20130206
  2. RAMIPRIL [Concomitant]
     Dosage: 2.5 MG, UNK
     Route: 048
     Dates: start: 201209

REACTIONS (1)
  - Arthritis reactive [Recovering/Resolving]
